FAERS Safety Report 7249414-5 (Version None)
Quarter: 2011Q1

REPORT INFORMATION
  Report Type: 
  Country: None (occurrence: None)
  Receive Date: 20110128
  Receipt Date: 20101216
  Transmission Date: 20110831
  Serious: Yes (Other)
  Sender: FDA-Public Use
  Company Number: DE-BAYER-201043549GPV

PATIENT
  Sex: Female
  Weight: 90 kg

DRUGS (3)
  1. ASPIRIN COMPLEX [Suspect]
  2. ASPIRIN COMPLEX [Suspect]
     Indication: NASOPHARYNGITIS
     Route: 048
     Dates: start: 20101002, end: 20101003
  3. MAGNESIUM [Concomitant]
     Dosage: 300 MG (DAILY DOSE), ,

REACTIONS (1)
  - MUSCLE SPASMS [None]
